FAERS Safety Report 15779310 (Version 1)
Quarter: 2019Q1

REPORT INFORMATION
  Report Type: Spontaneous
  Country: CA (occurrence: CA)
  Receive Date: 20190101
  Receipt Date: 20190101
  Transmission Date: 20190417
  Serious: Yes (Death, Other)
  Sender: FDA-Public Use
  Company Number: CA-ICU MEDICAL, INC.-ICU2018CA00250

PATIENT

DRUGS (12)
  1. PROPOFOL. [Suspect]
     Active Substance: PROPOFOL
     Indication: FOETAL EXPOSURE DURING PREGNANCY
  2. THIOPENTAL [Suspect]
     Active Substance: THIOPENTAL
     Indication: FOETAL EXPOSURE DURING PREGNANCY
  3. MIDAZOLAM [Suspect]
     Active Substance: MIDAZOLAM HYDROCHLORIDE
     Indication: FOETAL EXPOSURE DURING PREGNANCY
  4. PAROXETINE. [Suspect]
     Active Substance: PAROXETINE
     Indication: FOETAL EXPOSURE DURING PREGNANCY
  5. 5% DEXTROSE INJECTION [Suspect]
     Active Substance: DEXTROSE
     Indication: FOETAL EXPOSURE DURING PREGNANCY
  6. ATIVAN [Suspect]
     Active Substance: LORAZEPAM
     Indication: FOETAL EXPOSURE DURING PREGNANCY
  7. DIAZEPAM. [Suspect]
     Active Substance: DIAZEPAM
     Indication: FOETAL EXPOSURE DURING PREGNANCY
  8. MAGNESIUM SULFATE. [Suspect]
     Active Substance: MAGNESIUM SULFATE
     Indication: FOETAL EXPOSURE DURING PREGNANCY
  9. SUCCINYLCHOLINE CHLORIDE. [Suspect]
     Active Substance: SUCCINYLCHOLINE CHLORIDE
     Indication: FOETAL EXPOSURE DURING PREGNANCY
  10. METOCLOPRAMIDE. [Suspect]
     Active Substance: METOCLOPRAMIDE
     Indication: FOETAL EXPOSURE DURING PREGNANCY
  11. SODIUM CITRATE. [Suspect]
     Active Substance: SODIUM CITRATE
     Indication: FOETAL EXPOSURE DURING PREGNANCY
  12. PHENYTOIN. [Suspect]
     Active Substance: PHENYTOIN
     Indication: FOETAL EXPOSURE DURING PREGNANCY

REACTIONS (2)
  - Foetal death [Fatal]
  - Foetal exposure during pregnancy [Fatal]
